FAERS Safety Report 10575741 (Version 1)
Quarter: 2014Q4

REPORT INFORMATION
  Report Type: Spontaneous
  Country: US (occurrence: US)
  Receive Date: 20141111
  Receipt Date: 20141111
  Transmission Date: 20150529
  Serious: No
  Sender: FDA-Public Use
  Company Number: US-PFIZER INC-2014306377

PATIENT
  Sex: Male
  Weight: 79.37 kg

DRUGS (7)
  1. OXYCODONE [Concomitant]
     Active Substance: OXYCODONE
     Dosage: 7.5/325 4 TIMES A DAY
  2. QUETIAPINE FUMARATE. [Concomitant]
     Active Substance: QUETIAPINE FUMARATE
     Dosage: 1000 MG, DAILY
  3. TRAZODONE [Concomitant]
     Active Substance: TRAZODONE HYDROCHLORIDE
     Dosage: 150 MG, DAILY
  4. LYRICA [Suspect]
     Active Substance: PREGABALIN
     Indication: FIBROMYALGIA
     Dosage: 100 MG, 3X/DAY
     Dates: start: 201410
  5. AMITRIPTYLINE [Concomitant]
     Active Substance: AMITRIPTYLINE
     Dosage: TWO TABLETS 75MG AT NIGHT
  6. LYRICA [Suspect]
     Active Substance: PREGABALIN
     Dosage: UNK
  7. CLONAZEPAM. [Concomitant]
     Active Substance: CLONAZEPAM
     Dosage: 0.5MG AND WHOLE AT NIGHT

REACTIONS (7)
  - Withdrawal syndrome [Unknown]
  - Hyperhidrosis [Unknown]
  - Agitation [Unknown]
  - Anxiety [Unknown]
  - Feeling of body temperature change [Unknown]
  - Pain [Unknown]
  - Insomnia [Unknown]
